FAERS Safety Report 11150684 (Version 3)
Quarter: 2015Q2

REPORT INFORMATION
  Report Type: Spontaneous
  Country: US (occurrence: US)
  Receive Date: 20150601
  Receipt Date: 20150625
  Transmission Date: 20150821
  Serious: Yes (Hospitalization, Other)
  Sender: FDA-Public Use
  Company Number: US-ROCHE-1586170

PATIENT
  Age: 45 Year
  Sex: Female

DRUGS (23)
  1. PROAIR HFA [Concomitant]
     Active Substance: ALBUTEROL SULFATE
     Dosage: 1 TO 2 PUFFS EVERY 4 TO 6 HOURS AS NEEDED
     Route: 065
  2. DULERA [Concomitant]
     Active Substance: FORMOTEROL FUMARATE DIHYDRATE\MOMETASONE FUROATE
     Dosage: TO 2 PUFFS EVERY 1 TO 2 TIMES DAILY
     Route: 065
  3. SOLU-MEDROL [Concomitant]
     Active Substance: METHYLPREDNISOLONE SODIUM SUCCINATE
     Route: 042
  4. FLONASE (UNITED STATES) [Concomitant]
     Dosage: 1, 2 SPRAYS EACH NOSTRIL DAILY
     Route: 065
  5. ATROVENT [Concomitant]
     Active Substance: IPRATROPIUM BROMIDE
     Dosage: 0.06% SOLUTION (1 TO 2 SPRAYS EACH NOSTRIL THRICE A DAY)
     Route: 065
  6. PREDNISONE. [Concomitant]
     Active Substance: PREDNISONE
     Route: 065
  7. XOLAIR [Suspect]
     Active Substance: OMALIZUMAB
     Indication: ASTHMA
     Route: 058
     Dates: start: 20141124, end: 20150515
  8. PRILOSEC [Concomitant]
     Active Substance: OMEPRAZOLE MAGNESIUM
     Route: 065
  9. EPIPEN [Concomitant]
     Active Substance: EPINEPHRINE
  10. ASTELIN (UNITED STATES) [Concomitant]
     Dosage: 1 TO 2 SPRAYS EACH NOSTRIL BED TIME.
     Route: 065
  11. PEPCID [Concomitant]
     Active Substance: FAMOTIDINE
  12. ALBUTEROL. [Concomitant]
     Active Substance: ALBUTEROL
     Dosage: 4 PUFFS
     Route: 065
  13. ATROVENT HFA [Concomitant]
     Active Substance: IPRATROPIUM BROMIDE
     Dosage: (17 MCG) 1 TO 2 PUFFS 4 TIMES DAILY
     Route: 065
  14. SINGULAIR [Concomitant]
     Active Substance: MONTELUKAST SODIUM
     Route: 048
  15. PULMICORT TURBUHALER [Concomitant]
     Active Substance: BUDESONIDE
     Dosage: 1 AMPOULE IN NEBULIZER 1 TO 2 TIME DAILY
     Route: 065
  16. NYSTATIN. [Concomitant]
     Active Substance: NYSTATIN
     Dosage: 1000000 UNIT/ML
     Route: 065
  17. TRAMADOL [Concomitant]
     Active Substance: TRAMADOL
  18. TRAZODONE HYDROCHLORIDE. [Concomitant]
     Active Substance: TRAZODONE HYDROCHLORIDE
     Route: 065
  19. IPRATROPIUM BROMIDE. [Concomitant]
     Active Substance: IPRATROPIUM BROMIDE
     Dosage: EVERY 6 TO 8 HOURS AS PER REQUIRED
     Route: 065
  20. CLARITIN [Concomitant]
     Active Substance: LORATADINE
     Dosage: PRN
     Route: 065
  21. ISOSORBIDE DINITRATE. [Concomitant]
     Active Substance: ISOSORBIDE DINITRATE
     Route: 065
  22. BUSPIRONE [Concomitant]
     Active Substance: BUSPIRONE HYDROCHLORIDE
     Route: 065
  23. PROTONIX (OMEPRAZOLE) [Concomitant]
     Route: 065

REACTIONS (5)
  - Pain [Unknown]
  - Vomiting [Unknown]
  - Pyrexia [Unknown]
  - Serum sickness [Unknown]
  - Rash [Unknown]

NARRATIVE: CASE EVENT DATE: 20150407
